FAERS Safety Report 8885685 (Version 2)
Quarter: 2012Q4

REPORT INFORMATION
  Report Type: 
  Country: ES (occurrence: ES)
  Receive Date: 20121102
  Receipt Date: 20121109
  Transmission Date: 20130627
  Serious: Yes (Other)
  Sender: FDA-Public Use
  Company Number: ES-UCBSA-069927

PATIENT
  Age: 5 Year
  Sex: Male

DRUGS (1)
  1. KEPPRA [Suspect]
     Indication: EPILEPSY
     Dosage: 100 MG/ML
     Route: 048
     Dates: start: 20121026

REACTIONS (4)
  - Overdose [Unknown]
  - Medication error [Unknown]
  - Agitation [Recovered/Resolved]
  - Dizziness [Recovered/Resolved]
